FAERS Safety Report 5725755-5 (Version None)
Quarter: 2008Q2

REPORT INFORMATION
  Report Type: 
  Country: None (occurrence: None)
  Receive Date: 20080501
  Receipt Date: 20080424
  Transmission Date: 20081010
  Serious: Yes (Death)
  Sender: FDA-Public Use
  Company Number: US-GENENTECH-244506

PATIENT
  Age: 49 Year
  Sex: Female
  Weight: 90 kg

DRUGS (10)
  1. BEVACIZUMAB [Suspect]
     Indication: BREAST CANCER
     Dosage: 25 MG/KG, UNKNOWN
     Route: 042
     Dates: start: 20070419
  2. DOCETAXEL [Suspect]
     Indication: BREAST CANCER
     Dosage: 60 MG/M2, Q3W
     Route: 042
     Dates: start: 20070419
  3. CYCLOPHOSPHAMIDE [Suspect]
     Indication: BREAST CANCER
     Dosage: 500 MG/M2, UNK
     Dates: start: 20070419
  4. DOXORUBICIN HCL [Suspect]
     Indication: BREAST CANCER
     Dosage: 45 MG/M2, UNKNOWN
     Route: 042
     Dates: start: 20070419
  5. ZANTAC [Concomitant]
     Indication: DRUG USE FOR UNKNOWN INDICATION
  6. SYNTHROID [Concomitant]
     Indication: DRUG USE FOR UNKNOWN INDICATION
  7. FOSAMAX [Concomitant]
     Indication: DRUG USE FOR UNKNOWN INDICATION
  8. SENOKOT [Concomitant]
  9. CALCIUM 600 +D [Concomitant]
     Indication: DRUG USE FOR UNKNOWN INDICATION
  10. FLONASE [Concomitant]
     Indication: DRUG USE FOR UNKNOWN INDICATION

REACTIONS (1)
  - SEPSIS [None]
